FAERS Safety Report 20578095 (Version 1)
Quarter: 2022Q1

REPORT INFORMATION
  Report Type: Spontaneous
  Country: US (occurrence: None)
  Receive Date: 20220310
  Receipt Date: 20220310
  Transmission Date: 20220424
  Serious: Yes (Hospitalization)
  Sender: FDA-Public Use
  Company Number: None

PATIENT
  Age: 74 Year
  Sex: Male
  Weight: 86.18 kg

DRUGS (2)
  1. ATEZOLIZUMAB [Suspect]
     Active Substance: ATEZOLIZUMAB
     Indication: Hepatocellular carcinoma
     Dates: start: 20211123, end: 20211123
  2. BEVACIZUMAB-BVZR [Suspect]
     Active Substance: BEVACIZUMAB-BVZR
     Indication: Hepatocellular carcinoma
     Dates: start: 20211123, end: 20211123

REACTIONS (1)
  - Immune-mediated encephalopathy [None]

NARRATIVE: CASE EVENT DATE: 20211222
